FAERS Safety Report 9731754 (Version 3)
Quarter: 2014Q1

REPORT INFORMATION
  Report Type: Report from Study
  Country: US (occurrence: US)
  Receive Date: 20131204
  Receipt Date: 20140210
  Transmission Date: 20141002
  Serious: Yes (Disabling, Other)
  Sender: FDA-Public Use
  Company Number: US-CELGENEUS-163-21880-13094615

PATIENT
  Age: 69 Year
  Sex: Male
  Weight: 110.32 kg

DRUGS (26)
  1. REVLIMID [Suspect]
     Indication: B-CELL LYMPHOMA
     Dosage: 20 MILLIGRAM
     Route: 048
     Dates: start: 20130828, end: 20130912
  2. REVLIMID [Suspect]
     Dosage: 15 MILLIGRAM
     Route: 048
     Dates: start: 20130925, end: 20131015
  3. REVLIMID [Suspect]
     Dosage: 10 MILLIGRAM
     Route: 048
     Dates: start: 20131023, end: 20131103
  4. RITUXAN [Suspect]
     Indication: B-CELL LYMPHOMA
     Route: 065
     Dates: start: 20130313
  5. RITUXAN [Suspect]
     Route: 065
     Dates: start: 20130410
  6. RITUXAN [Suspect]
     Route: 065
     Dates: start: 20130508
  7. RITUXAN [Suspect]
     Route: 065
     Dates: start: 20130605
  8. RITUXAN [Suspect]
     Route: 065
     Dates: start: 20130702
  9. RITUXAN [Suspect]
     Route: 065
     Dates: start: 20130731
  10. RITUXAN [Suspect]
     Route: 065
     Dates: start: 20130925
  11. RITUXAN [Suspect]
     Route: 065
     Dates: end: 20131125
  12. BENDAMUSTINE [Suspect]
     Indication: B-CELL LYMPHOMA
     Route: 065
     Dates: start: 20130313, end: 20130314
  13. BENDAMUSTINE [Suspect]
     Route: 065
     Dates: start: 20130410, end: 20130411
  14. BENDAMUSTINE [Suspect]
     Route: 065
     Dates: start: 20130508, end: 20130509
  15. BENDAMUSTINE [Suspect]
     Route: 065
     Dates: start: 20130605, end: 20130606
  16. BENDAMUSTINE [Suspect]
     Route: 065
     Dates: start: 20130702, end: 20130703
  17. ALLOPURINOL [Concomitant]
     Indication: PRODUCT USED FOR UNKNOWN INDICATION
     Dosage: 300 MILLIGRAM
     Route: 065
  18. ASPIRIN [Concomitant]
     Indication: PRODUCT USED FOR UNKNOWN INDICATION
     Dosage: 325 MILLIGRAM
     Route: 065
  19. CALCIUM [Concomitant]
     Indication: PRODUCT USED FOR UNKNOWN INDICATION
     Dosage: 1000 MILLIGRAM
     Route: 065
  20. VITAMIN D3 [Concomitant]
     Indication: PRODUCT USED FOR UNKNOWN INDICATION
     Dosage: 1000 UNITS
     Route: 048
  21. VITAMIN B12 [Concomitant]
     Indication: PRODUCT USED FOR UNKNOWN INDICATION
     Dosage: 2500 MILLIGRAM
     Route: 048
  22. NAPROXEN [Concomitant]
     Indication: PRODUCT USED FOR UNKNOWN INDICATION
     Route: 065
  23. SUPER OMEGA [Concomitant]
     Indication: PRODUCT USED FOR UNKNOWN INDICATION
     Dosage: 3000 MILLIGRAM
     Route: 065
  24. ZANTAC [Concomitant]
     Indication: PRODUCT USED FOR UNKNOWN INDICATION
     Dosage: 300 MILLIGRAM
     Route: 065
  25. RAPAFLO [Concomitant]
     Indication: PRODUCT USED FOR UNKNOWN INDICATION
     Dosage: 8 MILLIGRAM
     Route: 065
  26. VALTREX [Concomitant]
     Indication: PRODUCT USED FOR UNKNOWN INDICATION
     Dosage: 500 MILLIGRAM
     Route: 065

REACTIONS (3)
  - Diarrhoea [Recovered/Resolved with Sequelae]
  - Haemorrhoids [Recovering/Resolving]
  - Neuropathy peripheral [Not Recovered/Not Resolved]
